FAERS Safety Report 6697537-1 (Version None)
Quarter: 2010Q2

REPORT INFORMATION
  Report Type: 
  Country: None (occurrence: None)
  Receive Date: 20100421
  Receipt Date: 20090511
  Transmission Date: 20101027
  Serious: Yes (Other)
  Sender: FDA-Public Use
  Company Number: 20090170

PATIENT
  Age: 63 Year
  Sex: Male

DRUGS (3)
  1. DEXFERRUM [Suspect]
     Indication: IRON DEFICIENCY
     Dosage: 0.5 ML TEST DOSE, INTRAVENOUS
     Route: 042
     Dates: start: 20090429, end: 20090429
  2. DECADRON [Concomitant]
  3. INFED [Concomitant]

REACTIONS (3)
  - DYSPNOEA [None]
  - FLUSHING [None]
  - NAUSEA [None]
